FAERS Safety Report 4684320-1 (Version None)
Quarter: 2005Q2

REPORT INFORMATION
  Report Type: 
  Country: None (occurrence: None)
  Receive Date: 20050607
  Receipt Date: 20050601
  Transmission Date: 20051028
  Serious: Yes (Life-Threatening)
  Sender: FDA-Public Use
  Company Number: 2005PK00939

PATIENT
  Age: 61 Year
  Sex: Female
  Weight: 77 kg

DRUGS (12)
  1. SEROQUEL [Suspect]
     Route: 048
     Dates: start: 20041111, end: 20041114
  2. SEROQUEL [Suspect]
     Route: 048
     Dates: start: 20041120
  3. DOMINAL [Suspect]
     Route: 048
     Dates: start: 20041109, end: 20041114
  4. DOMINAL [Suspect]
     Route: 048
     Dates: start: 20041120, end: 20041127
  5. DOMINAL [Suspect]
     Route: 048
     Dates: start: 20041128
  6. TEMESTA [Suspect]
     Route: 048
     Dates: start: 20041109, end: 20041112
  7. TEMESTA [Suspect]
     Route: 048
     Dates: start: 20041113, end: 20041114
  8. TEMESTA [Suspect]
     Route: 048
     Dates: start: 20041120, end: 20041126
  9. TEMESTA [Suspect]
     Route: 048
     Dates: start: 20041127, end: 20041127
  10. DEPAKENE [Suspect]
     Route: 048
     Dates: start: 20041109
  11. EBIXA [Concomitant]
     Route: 048
     Dates: start: 20041109, end: 20041125
  12. EBIXA [Concomitant]
     Route: 048
     Dates: start: 20041125

REACTIONS (7)
  - DYSPNOEA [None]
  - FALL [None]
  - HAEMORRHAGE [None]
  - HEAD INJURY [None]
  - HYPOTENSION [None]
  - LACERATION [None]
  - LOSS OF CONSCIOUSNESS [None]
